FAERS Safety Report 11746307 (Version 1)
Quarter: 2015Q4

REPORT INFORMATION
  Report Type: Spontaneous
  Country: US (occurrence: US)
  Receive Date: 20151117
  Receipt Date: 20151117
  Transmission Date: 20160304
  Serious: No
  Sender: FDA-Public Use
  Company Number: US-009507513-1511USA008307

PATIENT
  Sex: Male

DRUGS (1)
  1. RAGWITEK [Suspect]
     Active Substance: AMBROSIA ARTEMISIIFOLIA POLLEN
     Indication: SEASONAL ALLERGY
     Dosage: STRENGTH:12 AMB A 1-U, 1 TABLET/ONCE DAILY
     Route: 060
     Dates: end: 20151111

REACTIONS (2)
  - Tongue ulceration [Unknown]
  - Cheilitis [Unknown]
